FAERS Safety Report 15636454 (Version 1)
Quarter: 2018Q4

REPORT INFORMATION
  Report Type: Spontaneous
  Country: EC (occurrence: EC)
  Receive Date: 20181120
  Receipt Date: 20181120
  Transmission Date: 20190205
  Serious: Yes (Other)
  Sender: FDA-Public Use
  Company Number: EC-ABBVIE-18P-047-2561248-00

PATIENT
  Age: 48 Year
  Sex: Female

DRUGS (1)
  1. VALCOTE [Suspect]
     Active Substance: VALPROATE SODIUM
     Indication: HEADACHE
     Route: 048
     Dates: start: 20181109, end: 20181109

REACTIONS (9)
  - Chills [Unknown]
  - Dyspepsia [Not Recovered/Not Resolved]
  - Anuria [Recovered/Resolved]
  - Pain [Unknown]
  - Disorientation [Unknown]
  - Tachycardia [Recovered/Resolved]
  - Abdominal pain upper [Recovering/Resolving]
  - Nervousness [Unknown]
  - Hyperhidrosis [Unknown]

NARRATIVE: CASE EVENT DATE: 20181109
